FAERS Safety Report 7493926-6 (Version None)
Quarter: 2011Q2

REPORT INFORMATION
  Report Type: 
  Country: None (occurrence: None)
  Receive Date: 20110520
  Receipt Date: 20110506
  Transmission Date: 20111010
  Serious: Yes (Hospitalization, Disabling)
  Sender: FDA-Public Use
  Company Number: FR-CELGENEUS-056-50794-11050869

PATIENT
  Sex: Male

DRUGS (7)
  1. AMLODIPINE BESYLATE [Concomitant]
     Dosage: 10 MILLIGRAM
     Route: 048
  2. NOVORAPID [Concomitant]
     Indication: TYPE 2 DIABETES MELLITUS
     Dosage: 30 IU (INTERNATIONAL UNIT)
     Route: 058
  3. ZOLPIDEM [Concomitant]
     Dosage: 10 MILLIGRAM
     Route: 065
  4. VIDAZA [Suspect]
     Dosage: 150 MILLIGRAM
     Route: 051
     Dates: start: 20100809
  5. EPREX [Concomitant]
     Indication: ANAEMIA
     Route: 058
     Dates: start: 20110119
  6. LANTUS [Concomitant]
     Indication: TYPE 2 DIABETES MELLITUS
     Dosage: 32 IU (INTERNATIONAL UNIT)
     Route: 065
     Dates: start: 20101101
  7. PAROXETINE HCL [Concomitant]
     Dosage: 20 MILLIGRAM
     Route: 048

REACTIONS (3)
  - CYANOSIS [None]
  - PAIN IN EXTREMITY [None]
  - GAIT DISTURBANCE [None]
